FAERS Safety Report 7605344-8 (Version None)
Quarter: 2011Q3

REPORT INFORMATION
  Report Type: 
  Country: None (occurrence: None)
  Receive Date: 20110713
  Receipt Date: 20110701
  Transmission Date: 20111222
  Serious: Yes (Hospitalization, Disabling, Other)
  Sender: FDA-Public Use
  Company Number: GB-ELI_LILLY_AND_COMPANY-GB201106004536

PATIENT
  Age: 86 Year
  Sex: Male

DRUGS (11)
  1. ZOPLICONE [Concomitant]
     Dosage: 3.75 MG, QD
  2. DOCUSATE [Concomitant]
     Dosage: 100 MG, BID
  3. LITHIUM CARBONATE [Concomitant]
     Dosage: 200 MG, QD
  4. RAMIPRIL [Concomitant]
     Dosage: 1.25 MG, QD
  5. SENNA [Concomitant]
     Dosage: 15 MG, QD
  6. CLOPIDOGREL [Concomitant]
     Dosage: 75 MG, QD
  7. FOLIC ACID [Concomitant]
     Dosage: 5 MG, QD
  8. BUMETANIDE [Concomitant]
     Dosage: 2 MG, QD
  9. METOPROLOL TARTRATE [Concomitant]
     Dosage: 25 MG, TID
  10. OLANZAPINE [Suspect]
     Indication: BIPOLAR DISORDER
     Dosage: 7.5 MG, UNK
     Route: 048
     Dates: start: 20090701
  11. ASPIRIN [Concomitant]
     Dosage: 75 MG, QD

REACTIONS (3)
  - ELEVATED MOOD [None]
  - DYSARTHRIA [None]
  - SALIVARY HYPERSECRETION [None]
